FAERS Safety Report 7435047-4 (Version None)
Quarter: 2011Q2

REPORT INFORMATION
  Report Type: 
  Country: None (occurrence: None)
  Receive Date: 20110425
  Receipt Date: 20110414
  Transmission Date: 20111010
  Serious: Yes (Disabling)
  Sender: FDA-Public Use
  Company Number: BR-ASTRAZENECA-2011SE22004

PATIENT
  Age: 55 Year
  Sex: Female
  Weight: 62 kg

DRUGS (4)
  1. NEXIUM [Suspect]
     Route: 048
  2. ROSUVASTATIN CALCIUM [Suspect]
     Indication: HYPERCHOLESTEROLAEMIA
     Route: 048
     Dates: start: 20100101
  3. NEXIUM [Suspect]
     Indication: OESOPHAGITIS
     Route: 048
  4. GLUCOSAMINE AND CONDROITIN SULFATE [Concomitant]
     Indication: OSTEOARTHRITIS
     Route: 048
     Dates: start: 20030101

REACTIONS (7)
  - ANXIETY [None]
  - HYPERCHOLESTEROLAEMIA [None]
  - VOMITING [None]
  - OFF LABEL USE [None]
  - DIZZINESS [None]
  - HYPERTENSION [None]
  - ABDOMINAL PAIN UPPER [None]
